FAERS Safety Report 15602112 (Version 3)
Quarter: 2018Q4

REPORT INFORMATION
  Report Type: Report from Study
  Country: None (occurrence: GB)
  Receive Date: 20181109
  Receipt Date: 20181120
  Transmission Date: 20190205
  Serious: Yes (Hospitalization)
  Sender: FDA-Public Use
  Company Number: GB-ABBVIE-18S-167-2450602-00

PATIENT
  Sex: Male

DRUGS (2)
  1. DUODOPA [Suspect]
     Active Substance: CARBIDOPA\LEVODOPA
     Indication: PARKINSON^S DISEASE
     Dosage: 2 CASSETTE DAILY
     Route: 050
     Dates: end: 2018
  2. DUODOPA [Suspect]
     Active Substance: CARBIDOPA\LEVODOPA
     Dosage: 1 CASSETTE DAILY
     Route: 050
     Dates: end: 20181107

REACTIONS (7)
  - Device dislocation [Unknown]
  - Embedded device [Unknown]
  - Weight increased [Unknown]
  - Stoma site extravasation [Unknown]
  - Stoma site infection [Unknown]
  - Stoma site hypergranulation [Unknown]
  - Stoma site discharge [Unknown]

NARRATIVE: CASE EVENT DATE: 2018
